FAERS Safety Report 23242607 (Version 1)
Quarter: 2023Q4

REPORT INFORMATION
  Report Type: Spontaneous
  Country: AR (occurrence: AR)
  Receive Date: 20231129
  Receipt Date: 20231129
  Transmission Date: 20240109
  Serious: Yes (Life-Threatening, Other)
  Sender: FDA-Public Use
  Company Number: AR-MYLANLABS-2023M1126469

PATIENT
  Sex: Female

DRUGS (2)
  1. ZELDOX [Suspect]
     Active Substance: ZIPRASIDONE
     Indication: Mental disorder
     Dosage: UNK
     Route: 065
  2. ZELDOX [Suspect]
     Active Substance: ZIPRASIDONE
     Indication: Mental disorder
     Dosage: UNK
     Route: 065

REACTIONS (2)
  - Near death experience [Unknown]
  - Product availability issue [Unknown]
